FAERS Safety Report 4482479-2 (Version None)
Quarter: 2004Q4

REPORT INFORMATION
  Report Type: 
  Country: None (occurrence: None)
  Receive Date: 20041022
  Receipt Date: 20041012
  Transmission Date: 20050328
  Serious: Yes (Other)
  Sender: FDA-Public Use
  Company Number: IT-GLAXOSMITHKLINE-B0348720A

PATIENT
  Age: 50 Year
  Sex: Male

DRUGS (3)
  1. ZIAGEN [Suspect]
  2. INDINAVIR [Concomitant]
  3. LAMIVUDINE + ZIDOVUDINE [Concomitant]

REACTIONS (1)
  - DIABETES MELLITUS INSULIN-DEPENDENT [None]
